FAERS Safety Report 7719809-1 (Version None)
Quarter: 2011Q3

REPORT INFORMATION
  Report Type: 
  Country: None (occurrence: None)
  Receive Date: 20110831
  Receipt Date: 20110822
  Transmission Date: 20111222
  Serious: No
  Sender: FDA-Public Use
  Company Number: US-BIOGENIDEC-2011BI017484

PATIENT
  Age: 60 Year
  Sex: Female

DRUGS (3)
  1. TYSABRI [Suspect]
     Indication: MULTIPLE SCLEROSIS
     Route: 042
     Dates: start: 20071019, end: 20110330
  2. MEDICATION (NOS) [Concomitant]
  3. TYSABRI [Suspect]
     Route: 042
     Dates: start: 20110818

REACTIONS (1)
  - RASH [None]
